FAERS Safety Report 11668316 (Version 3)
Quarter: 2015Q4

REPORT INFORMATION
  Report Type: Report from Study
  Country: US (occurrence: US)
  Receive Date: 20151027
  Receipt Date: 20151226
  Transmission Date: 20160304
  Serious: No
  Sender: FDA-Public Use
  Company Number: PHEH2015US021730

PATIENT
  Age: 41 Year
  Sex: Male
  Weight: 130.16 kg

DRUGS (1)
  1. GILENYA [Suspect]
     Active Substance: FINGOLIMOD HYDROCHLORIDE
     Indication: MULTIPLE SCLEROSIS
     Dosage: 0.5 MG, QD
     Route: 048
     Dates: start: 20151023

REACTIONS (3)
  - Nausea [Recovered/Resolved]
  - Multiple sclerosis relapse [Unknown]
  - Pain [Unknown]

NARRATIVE: CASE EVENT DATE: 20151023
